FAERS Safety Report 8188291-5 (Version None)
Quarter: 2012Q1

REPORT INFORMATION
  Report Type: 
  Country: None (occurrence: None)
  Receive Date: 20120306
  Receipt Date: 20120223
  Transmission Date: 20120608
  Serious: Yes (Hospitalization)
  Sender: FDA-Public Use
  Company Number: CA-ELI_LILLY_AND_COMPANY-CA201201006646

PATIENT
  Age: 65 Year
  Sex: Female
  Weight: 52.5 kg

DRUGS (10)
  1. VITAMIN D [Concomitant]
     Dosage: UNK, UNKNOWN
  2. METFORMIN HCL [Concomitant]
     Dosage: UNK, UNKNOWN
  3. CRESTOR [Concomitant]
     Dosage: UNK, UNKNOWN
  4. PROPRANOLOL [Concomitant]
     Dosage: UNK, UNKNOWN
  5. AMLODIPINE [Concomitant]
     Dosage: UNK, UNKNOWN
  6. FORTEO [Suspect]
     Indication: OSTEOPOROSIS
     Dosage: 20 UG, QD
     Route: 058
     Dates: start: 20110524
  7. FORTEO [Suspect]
     Dosage: 20 UG, QD
     Route: 058
  8. ENBREL [Concomitant]
     Dosage: UNK, UNKNOWN
  9. HYDROCHLOROTHIAZIDE [Concomitant]
     Dosage: UNK, UNKNOWN
  10. CALCIUM [Concomitant]
     Dosage: UNK, UNKNOWN

REACTIONS (2)
  - BONE PAIN [None]
  - DEVICE FAILURE [None]
